FAERS Safety Report 25596515 (Version 1)
Quarter: 2025Q3

REPORT INFORMATION
  Report Type: Spontaneous
  Country: CA (occurrence: CA)
  Receive Date: 20250723
  Receipt Date: 20250723
  Transmission Date: 20251020
  Serious: Yes (Other)
  Sender: MERZ
  Company Number: CA-MERZ PHARMACEUTICALS LLC-ACO_178459_2025

PATIENT
  Sex: Male

DRUGS (1)
  1. DALFAMPRIDINE [Suspect]
     Active Substance: DALFAMPRIDINE
     Indication: Product used for unknown indication
     Dosage: 20.0 MILLIGRAM, BID
     Route: 048

REACTIONS (4)
  - Gait disturbance [Unknown]
  - Condition aggravated [Unknown]
  - Drug ineffective [Unknown]
  - Prescribed overdose [Unknown]
